FAERS Safety Report 7972003-1 (Version None)
Quarter: 2011Q4

REPORT INFORMATION
  Report Type: 
  Country: None (occurrence: None)
  Receive Date: 20111212
  Receipt Date: 20111130
  Transmission Date: 20120403
  Serious: Yes (Hospitalization, Other)
  Sender: FDA-Public Use
  Company Number: JP-ALLERGAN-1115920US

PATIENT
  Age: 75 Year
  Sex: Male

DRUGS (2)
  1. LUMIGAN [Suspect]
     Indication: GLAUCOMA
     Dosage: 1 GTT, QD
     Route: 047
     Dates: start: 20110427
  2. NIFLAN [Concomitant]
     Dosage: UNK
     Dates: start: 20100329

REACTIONS (1)
  - RETINAL DETACHMENT [None]
